FAERS Safety Report 7582453-3 (Version None)
Quarter: 2011Q2

REPORT INFORMATION
  Report Type: 
  Country: None (occurrence: None)
  Receive Date: 20110630
  Receipt Date: 20110622
  Transmission Date: 20111010
  Serious: Yes (Other)
  Sender: FDA-Public Use
  Company Number: US-PFIZER INC-2011140826

PATIENT

DRUGS (3)
  1. VANCOMYCIN HCL [Suspect]
     Indication: STAPHYLOCOCCAL INFECTION
  2. GENTAMYCIN SULFATE [Suspect]
     Indication: STAPHYLOCOCCAL INFECTION
  3. RIFAMPIN [Suspect]
     Indication: STAPHYLOCOCCAL INFECTION

REACTIONS (1)
  - RENAL FAILURE ACUTE [None]
